FAERS Safety Report 7086305-7 (Version None)
Quarter: 2010Q4

REPORT INFORMATION
  Report Type: 
  Country: None (occurrence: None)
  Receive Date: 20101105
  Receipt Date: 20101104
  Transmission Date: 20110411
  Serious: Yes (Hospitalization)
  Sender: FDA-Public Use
  Company Number: IT-SANOFI-AVENTIS-2010SA067056

PATIENT
  Age: 60 Year
  Sex: Female

DRUGS (3)
  1. PLAQUENIL [Suspect]
     Route: 048
     Dates: start: 20100903, end: 20100903
  2. TRIATEC [Concomitant]
  3. AMLODIPINE [Concomitant]

REACTIONS (1)
  - PUSTULAR PSORIASIS [None]
